FAERS Safety Report 4669718-X (Version None)
Quarter: 2005Q2

REPORT INFORMATION
  Report Type: 
  Country: None (occurrence: None)
  Receive Date: 20050520
  Receipt Date: 20050513
  Transmission Date: 20051028
  Serious: Yes (Death)
  Sender: FDA-Public Use
  Company Number: 05-05-0830

PATIENT
  Sex: Male

DRUGS (6)
  1. ALBUTEROL SULFATE UNKNOWN [Suspect]
  2. ATROVENT [Suspect]
  3. AMOXICILLIN [Suspect]
     Dosage: INTRAVENOUS
     Route: 042
  4. CLARITHROMYCIN AEROSOL FOAM [Suspect]
  5. CO-DANTHRAMER [Suspect]
  6. PARACETAMOL [Suspect]

REACTIONS (2)
  - BRONCHIAL CARCINOMA [None]
  - PNEUMONIA [None]
